FAERS Safety Report 8053787-3 (Version None)
Quarter: 2012Q1

REPORT INFORMATION
  Report Type: 
  Country: None (occurrence: None)
  Receive Date: 20120118
  Receipt Date: 20120109
  Transmission Date: 20120608
  Serious: Yes (Hospitalization)
  Sender: FDA-Public Use
  Company Number: US-ACTELION-A-US2007-14053

PATIENT

DRUGS (2)
  1. REVATIO [Concomitant]
  2. TRACLEER [Suspect]
     Indication: PULMONARY ARTERIAL HYPERTENSION
     Dosage: UNK MG, UNK
     Route: 048
     Dates: start: 20050930

REACTIONS (9)
  - PNEUMONIA [None]
  - PYREXIA [None]
  - CHEST PAIN [None]
  - COUGH [None]
  - DYSGEUSIA [None]
  - INCREASED UPPER AIRWAY SECRETION [None]
  - ABDOMINAL WALL HAEMATOMA [None]
  - ALOPECIA [None]
  - DYSPNOEA [None]
